FAERS Safety Report 8247289-9 (Version None)
Quarter: 2012Q1

REPORT INFORMATION
  Report Type: 
  Country: None (occurrence: None)
  Receive Date: 20120330
  Receipt Date: 20120323
  Transmission Date: 20120608
  Serious: Yes (Death, Hospitalization, Other)
  Sender: FDA-Public Use
  Company Number: NO-PFIZER INC-2012079394

PATIENT
  Age: 96 Year
  Sex: Female

DRUGS (7)
  1. SEROQUEL [Suspect]
     Dosage: 25 MG, DAILY
  2. WARFARIN [Concomitant]
     Dosage: UNK
  3. METOPROLOL SUCCINATE [Concomitant]
     Dosage: UNK
  4. DIGITOXIN TAB [Suspect]
     Dosage: 50 MICROGRAM(S);3 TIMES PER WEEK
  5. RAMIPRIL [Suspect]
     Dosage: 5 MG, DAILY
  6. BUMETANIDE [Concomitant]
     Dosage: UNK
  7. IMDUR [Concomitant]
     Dosage: UNK

REACTIONS (5)
  - VOMITING [None]
  - RENAL FAILURE CHRONIC [None]
  - NAUSEA [None]
  - DEATH [None]
  - TOXICITY TO VARIOUS AGENTS [None]
